FAERS Safety Report 5824595-6 (Version None)
Quarter: 2008Q3

REPORT INFORMATION
  Report Type: 
  Country: None (occurrence: None)
  Receive Date: 20080728
  Receipt Date: 20080123
  Transmission Date: 20090109
  Serious: No
  Sender: FDA-Public Use
  Company Number: US-BAYER-200810397BCC

PATIENT
  Age: 76 Year
  Sex: Female
  Weight: 68 kg

DRUGS (3)
  1. ALEVE [Suspect]
     Indication: DRUG USE FOR UNKNOWN INDICATION
     Dosage: TOTAL DAILY DOSE: 220 MG  UNIT DOSE: 220 MG
     Route: 048
     Dates: start: 20080122
  2. ONE-A-DAY ENERGY [Suspect]
     Indication: VITAMIN SUPPLEMENTATION
     Dates: start: 20080122
  3. VITAMIN B [Concomitant]

REACTIONS (1)
  - VOMITING [None]
